FAERS Safety Report 7626867-1 (Version None)
Quarter: 2011Q3

REPORT INFORMATION
  Report Type: 
  Country: None (occurrence: None)
  Receive Date: 20110721
  Receipt Date: 20110711
  Transmission Date: 20111222
  Serious: Yes (Other)
  Sender: FDA-Public Use
  Company Number: SE-SANOFI-AVENTIS-2011SA043576

PATIENT
  Age: 77 Year
  Sex: Female

DRUGS (13)
  1. TRAMADOL HCL [Interacting]
     Indication: OSTEOPOROSIS
     Route: 048
     Dates: end: 20110420
  2. ALVEDON [Concomitant]
     Route: 065
  3. WARFARIN SODIUM [Concomitant]
     Route: 065
  4. PANTOPRAZOLE [Concomitant]
     Route: 065
  5. LOSARTAN POTASSIUM [Concomitant]
     Route: 065
  6. PROPOFOL [Interacting]
     Route: 051
     Dates: start: 20110420, end: 20110420
  7. ENALAPRIL COMP RATIOPHARM [Concomitant]
     Route: 065
  8. ALENDRONIC ACID [Concomitant]
     Route: 065
  9. BISOPROLOL [Concomitant]
     Route: 065
  10. AMLODIPINE [Concomitant]
     Route: 065
  11. ORALOVITE [Concomitant]
     Route: 065
  12. MULTAQ [Suspect]
     Indication: ATRIAL FIBRILLATION
     Route: 048
  13. SIMVASTATIN [Concomitant]
     Route: 065

REACTIONS (2)
  - CONVULSION [None]
  - DRUG INTERACTION [None]
